FAERS Safety Report 10874763 (Version 1)
Quarter: 2015Q1

REPORT INFORMATION
  Report Type: Spontaneous
  Country: CH (occurrence: CH)
  Receive Date: 20150227
  Receipt Date: 20150227
  Transmission Date: 20150721
  Serious: Yes (Other)
  Sender: FDA-Public Use
  Company Number: CH-RECKITT BENCKISER PHARMACEUTICAL, INC-RB-076129-2015

PATIENT
  Age: 0 Year
  Sex: Female
  Weight: 1.5 kg

DRUGS (6)
  1. REMERON [Suspect]
     Active Substance: MIRTAZAPINE
     Indication: DISSOCIATION
     Dosage: 15 MG, QD
     Route: 064
     Dates: start: 20140105, end: 20140821
  2. METHADONE [Suspect]
     Active Substance: METHADONE HYDROCHLORIDE
     Indication: PRODUCT USED FOR UNKNOWN INDICATION
     Dosage: UNK
     Route: 064
     Dates: start: 2014, end: 2014
  3. HEROIN [Suspect]
     Active Substance: DIACETYLMORPHINE
     Indication: PRODUCT USED FOR UNKNOWN INDICATION
     Dosage: 0.3 MG PER DOSE ON AN ALMOST DAILY BASIS
     Route: 064
     Dates: start: 2014, end: 2014
  4. NICOTINE. [Suspect]
     Active Substance: NICOTINE
     Indication: PRODUCT USED FOR UNKNOWN INDICATION
     Dosage: ABOUT TEN CIGARETTES A DAY
     Route: 064
     Dates: start: 2014, end: 20140821
  5. SUBUTEX [Suspect]
     Active Substance: BUPRENORPHINE HYDROCHLORIDE
     Indication: POLYSUBSTANCE DEPENDENCE
     Dosage: 1.4 MG, QD, NOT TAKING ON THOSE DAYS WHEN TAKING HEROIN
     Route: 064
     Dates: start: 20140119, end: 20140821
  6. RIVOTRIL [Suspect]
     Active Substance: CLONAZEPAM
     Indication: DISSOCIATION
     Dosage: 0.5 MG, BID
     Route: 064
     Dates: start: 20140119, end: 20140821

REACTIONS (5)
  - Drug withdrawal syndrome neonatal [Unknown]
  - Neonatal respiratory distress syndrome [Unknown]
  - Bradypnoea [Unknown]
  - Foetal exposure during pregnancy [Recovered/Resolved]
  - Premature baby [Unknown]

NARRATIVE: CASE EVENT DATE: 20140119
